FAERS Safety Report 5339149-8 (Version None)
Quarter: 2007Q2

REPORT INFORMATION
  Report Type: 
  Country: None (occurrence: None)
  Receive Date: 20070530
  Receipt Date: 20070524
  Transmission Date: 20071010
  Serious: Yes (Hospitalization)
  Sender: FDA-Public Use
  Company Number: US-BOEHRINGER INGELHEIM PHARMACEUTICALS, INC.-2007-BP-05588BP

PATIENT
  Sex: Female

DRUGS (25)
  1. SPIRIVA [Suspect]
     Indication: BRONCHOSPASM
     Dates: start: 20061101, end: 20070101
  2. EZETIMIBE [Concomitant]
     Route: 048
  3. ALLEGRA [Concomitant]
     Route: 048
  4. SOMA [Concomitant]
     Route: 048
  5. ATENOLOL [Concomitant]
     Route: 048
  6. TYLENOL W/ CODEINE [Concomitant]
     Route: 048
  7. NPH INSULIN [Concomitant]
  8. INSULIN [Concomitant]
  9. PROVENTIL-HFA [Concomitant]
     Route: 055
  10. NASONEX [Concomitant]
     Route: 045
  11. METFORMIN HCL [Concomitant]
  12. LASIX [Concomitant]
  13. CYMBALTA [Concomitant]
     Route: 048
  14. PROVIGIL [Concomitant]
     Route: 048
  15. VISTRIL [Concomitant]
     Route: 048
  16. TOPAMAX [Concomitant]
     Route: 048
  17. PRAVACHOL [Concomitant]
     Route: 048
  18. LYRICA [Concomitant]
     Route: 048
  19. ADVAIR DISKUS 100/50 [Concomitant]
  20. ASPIRIN [Concomitant]
  21. OMEGA 3 FISH OIL [Concomitant]
  22. VITAMIN B COMPLEX CAP [Concomitant]
     Indication: ROUTINE HEALTH MAINTENANCE
  23. ASCORBIC ACID [Concomitant]
     Indication: ROUTINE HEALTH MAINTENANCE
  24. CALCIUM  W/MINERALS W/VIT D [Concomitant]
     Indication: ROUTINE HEALTH MAINTENANCE
  25. ANUSOL [Concomitant]
     Indication: HAEMORRHOIDS

REACTIONS (3)
  - OEDEMA [None]
  - OEDEMA PERIPHERAL [None]
  - SWELLING [None]
